FAERS Safety Report 8301847-1 (Version None)
Quarter: 2012Q2

REPORT INFORMATION
  Report Type: 
  Country: None (occurrence: None)
  Receive Date: 20120420
  Receipt Date: 20120412
  Transmission Date: 20120825
  Serious: Yes (Hospitalization, Other)
  Sender: FDA-Public Use
  Company Number: US-ROXANE LABORATORIES, INC.-2012-RO-01059RO

PATIENT
  Age: 46 Year
  Sex: Female

DRUGS (3)
  1. ISOCARBOXAZID [Suspect]
     Indication: DEPRESSION
     Dosage: 60 MG
  2. PHENETHYLAMINE [Suspect]
     Indication: DEPRESSION
     Dosage: 500 MG
  3. LITHIUM CARBONATE [Suspect]
     Indication: DEPRESSION
     Dosage: 600 MG

REACTIONS (8)
  - STRESS CARDIOMYOPATHY [None]
  - ANXIETY [None]
  - TRICUSPID VALVE INCOMPETENCE [None]
  - PULMONARY OEDEMA [None]
  - PULMONARY HYPERTENSION [None]
  - MITRAL VALVE INCOMPETENCE [None]
  - HYPOTENSION [None]
  - SEROTONIN SYNDROME [None]
